FAERS Safety Report 8614115-5 (Version None)
Quarter: 2012Q3

REPORT INFORMATION
  Report Type: 
  Country: None (occurrence: None)
  Receive Date: 20120823
  Receipt Date: 20120815
  Transmission Date: 20120928
  Serious: Yes (Hospitalization)
  Sender: FDA-Public Use
  Company Number: US-BAYER-2012-032278

PATIENT
  Age: 45 Year
  Sex: Female

DRUGS (6)
  1. CHERATUSSIN DAC [Concomitant]
     Dosage: 2 TEASPOONSFUL AFTER MEALS AND AT BEDTIME
     Route: 048
     Dates: start: 20070517
  2. DRUGS FOR OBSTRUCTIVE AIRWAY DISEASES [Concomitant]
     Dosage: 8.5GM 2 PUFFS QID OR 1 PUFF Q4 PRN
     Route: 048
     Dates: start: 20070418
  3. CLARITHROMYCIN [Concomitant]
     Dosage: 500 MG, UNK
     Route: 048
     Dates: start: 20070517
  4. PIROXICAM [Concomitant]
     Dosage: 20 MG, DAILY
     Route: 048
     Dates: start: 20070601
  5. YAZ [Suspect]
     Dosage: UNK
     Dates: start: 20070301, end: 20070601
  6. ALLEGRA-D 12 HOUR [Concomitant]
     Dosage: 1 DAILY
     Route: 048
     Dates: start: 20070416

REACTIONS (7)
  - GENERAL PHYSICAL HEALTH DETERIORATION [None]
  - INJURY [None]
  - PAIN [None]
  - ANXIETY [None]
  - PULMONARY EMBOLISM [None]
  - EMOTIONAL DISTRESS [None]
  - DEEP VEIN THROMBOSIS [None]
